FAERS Safety Report 7650932-6 (Version None)
Quarter: 2011Q3

REPORT INFORMATION
  Report Type: 
  Country: None (occurrence: None)
  Receive Date: 20110802
  Receipt Date: 20110719
  Transmission Date: 20111222
  Serious: Yes (Other)
  Sender: FDA-Public Use
  Company Number: US-BAYER-201041595NA

PATIENT
  Age: 30 Year
  Sex: Female
  Weight: 47 kg

DRUGS (13)
  1. ONDASETRON [Concomitant]
     Dosage: 4 MG, UNK
     Route: 048
     Dates: start: 20080926
  2. CIPROFLAXACIN [Concomitant]
     Dosage: 500 MG, TID
     Route: 048
     Dates: start: 20080830
  3. DIPHENOXYLATE HCL + ATROPINE SULFATE [Concomitant]
     Dosage: UNK
     Route: 048
     Dates: start: 20080926
  4. OXYCODONE HCL AND ACETAMINOPHEN [Concomitant]
     Dosage: UNK
     Route: 048
     Dates: start: 20080729
  5. PROMETHAZINE [Concomitant]
     Dosage: 10 MG, UNK
     Route: 048
     Dates: start: 20081018
  6. YAZ [Suspect]
     Route: 048
     Dates: start: 20080806, end: 20090501
  7. PROMETHAZINE [Concomitant]
     Dosage: 25 MG, UNK
     Route: 048
     Dates: start: 20080830
  8. PROMETHAZINE [Concomitant]
     Dosage: UNK
     Route: 054
     Dates: start: 20080830
  9. VICODIN [Concomitant]
     Indication: PAIN
  10. PROCHLORPERAZINE [Concomitant]
     Indication: NAUSEA
     Dosage: 10 MG, UNK
     Dates: start: 20081016
  11. OMEPRAZOLE [Concomitant]
     Dosage: 20 MG, OM
     Route: 048
     Dates: start: 20080908
  12. PROCHLORPERAZINE [Concomitant]
     Indication: VOMITING
  13. PHENERGAN HCL [Concomitant]
     Dosage: 25 MG, UNK

REACTIONS (2)
  - GALLBLADDER INJURY [None]
  - CHOLECYSTITIS CHRONIC [None]
